FAERS Safety Report 7897109-7 (Version None)
Quarter: 2011Q4

REPORT INFORMATION
  Report Type: 
  Country: None (occurrence: None)
  Receive Date: 20111107
  Receipt Date: 20111028
  Transmission Date: 20120403
  Serious: Yes (Other)
  Sender: FDA-Public Use
  Company Number: CA-JNJFOC-20110506650

PATIENT
  Sex: Female
  Weight: 76.66 kg

DRUGS (2)
  1. TYLENOL 8 HOUR EXTEND RELEASE MUSCLE ACHES AND BODY PAIN [Suspect]
     Route: 048
  2. TYLENOL 8 HOUR EXTEND RELEASE MUSCLE ACHES AND BODY PAIN [Suspect]
     Indication: ARTHRALGIA
     Route: 048
     Dates: start: 20100624, end: 20100626

REACTIONS (3)
  - PALPITATIONS [None]
  - VOMITING [None]
  - HYPERSENSITIVITY [None]
